FAERS Safety Report 5624214-8 (Version None)
Quarter: 2008Q1

REPORT INFORMATION
  Report Type: 
  Country: None (occurrence: None)
  Receive Date: 20080213
  Receipt Date: 20080208
  Transmission Date: 20080703
  Serious: Yes (Life-Threatening, Hospitalization)
  Sender: FDA-Public Use
  Company Number: PHBS2007JP16102

PATIENT
  Age: 55 Year
  Sex: Male
  Weight: 80 kg

DRUGS (4)
  1. VOLTAREN [Suspect]
     Indication: ABDOMINAL PAIN
     Dosage: 25 MG, QD
     Route: 054
     Dates: start: 20070428, end: 20070428
  2. VOLTAREN [Suspect]
     Dosage: 25 MG/DAY
     Route: 054
     Dates: start: 20070428, end: 20070428
  3. BOSMIN [Concomitant]
     Indication: SHOCK
     Route: 041
     Dates: start: 20070428, end: 20070430
  4. INOVAN [Concomitant]
     Indication: SHOCK
     Route: 041
     Dates: start: 20070428, end: 20070504

REACTIONS (17)
  - ACIDOSIS [None]
  - ADRENAL INSUFFICIENCY [None]
  - ANURIA [None]
  - ASPARTATE AMINOTRANSFERASE INCREASED [None]
  - BLOOD ALKALINE PHOSPHATASE INCREASED [None]
  - BLOOD CREATININE INCREASED [None]
  - BLOOD UREA INCREASED [None]
  - C-REACTIVE PROTEIN INCREASED [None]
  - DEHYDRATION [None]
  - ENTERITIS INFECTIOUS [None]
  - HYPERKALAEMIA [None]
  - HYPOGLYCAEMIA [None]
  - HYPONATRAEMIA [None]
  - HYPOTENSION [None]
  - RENAL FAILURE ACUTE [None]
  - SEPSIS [None]
  - SHOCK [None]
